FAERS Safety Report 15239911 (Version 2)
Quarter: 2018Q3

REPORT INFORMATION
  Report Type: Spontaneous
  Country: US (occurrence: US)
  Receive Date: 20180803
  Receipt Date: 20180808
  Transmission Date: 20181010
  Serious: No
  Sender: FDA-Public Use
  Company Number: US-PFIZER INC-2018311214

PATIENT
  Age: 35 Year
  Sex: Female
  Weight: 53.52 kg

DRUGS (4)
  1. METHOTREXATE SODIUM. [Suspect]
     Active Substance: METHOTREXATE SODIUM
     Indication: ECTOPIC PREGNANCY
     Dosage: 4 VIALS OF 50 ML, SINGLE
     Dates: start: 20180710, end: 20180710
  2. ADVIL [Concomitant]
     Active Substance: IBUPROFEN
     Indication: INFLAMMATION
  3. ADVIL [Concomitant]
     Active Substance: IBUPROFEN
     Indication: PAIN
     Dosage: 800 MG, EVERY 4 HRS, ABOUT 3 DAYS A MONTH
     Dates: start: 2002
  4. ADVIL [Concomitant]
     Active Substance: IBUPROFEN
     Indication: ENDOMETRIOSIS

REACTIONS (1)
  - Product use in unapproved indication [Unknown]
